FAERS Safety Report 15362174 (Version 6)
Quarter: 2023Q4

REPORT INFORMATION
  Report Type: Report from Study
  Country: CO (occurrence: CO)
  Receive Date: 20180907
  Receipt Date: 20231102
  Transmission Date: 20240110
  Serious: Yes (Hospitalization, Other)
  Sender: FDA-Public Use
  Company Number: PHHY2018CO092847

PATIENT
  Sex: Female
  Weight: 3.5 kg

DRUGS (4)
  1. ELTROMBOPAG OLAMINE [Suspect]
     Active Substance: ELTROMBOPAG OLAMINE
     Indication: Foetal exposure during pregnancy
     Dosage: (MATERNAL DOSE: 50 MG, QD, ONSET DATE: 2015)
     Route: 064
  2. ELTROMBOPAG OLAMINE [Suspect]
     Active Substance: ELTROMBOPAG OLAMINE
     Dosage: (MATERNAL DOSE: 25 MG, QD,  1 OF 25 MG, ONSET DATE: 2016)
     Route: 064
  3. ELTROMBOPAG OLAMINE [Suspect]
     Active Substance: ELTROMBOPAG OLAMINE
     Dosage: (MATERNAL DOSE: 25 MG, QD, ONSET DATE: 11 AUG 2018)
     Route: 064
  4. ELTROMBOPAG OLAMINE [Suspect]
     Active Substance: ELTROMBOPAG OLAMINE
     Dosage: (MATERNAL DOSE: 50 MG, QD)
     Route: 064

REACTIONS (14)
  - Thrombocytopenic purpura [Recovered/Resolved]
  - Contusion [Recovered/Resolved]
  - Thrombocytopenia [Recovered/Resolved]
  - Petechiae [Recovered/Resolved]
  - Haematoma [Recovered/Resolved]
  - Milk allergy [Recovered/Resolved]
  - Epilepsy [Unknown]
  - Developmental delay [Unknown]
  - Autism spectrum disorder [Unknown]
  - Meconium aspiration syndrome [Recovered/Resolved]
  - Nervous system disorder [Unknown]
  - Foetal exposure during pregnancy [Unknown]
  - Anaemia [Unknown]
  - Platelet count increased [Unknown]

NARRATIVE: CASE EVENT DATE: 20180811
